FAERS Safety Report 13162338 (Version 1)
Quarter: 2017Q1

REPORT INFORMATION
  Report Type: Spontaneous
  Country: US (occurrence: US)
  Receive Date: 20170125
  Receipt Date: 20170125
  Transmission Date: 20170428
  Serious: Yes (Hospitalization, Disabling)
  Sender: FDA-Public Use
  Company Number: None

PATIENT
  Age: 48 Year
  Sex: Female
  Weight: 63 kg

DRUGS (3)
  1. CIPRO [Suspect]
     Active Substance: CIPROFLOXACIN HYDROCHLORIDE
     Indication: INFECTION PROPHYLAXIS
     Route: 048
     Dates: start: 20120804, end: 20141204
  2. CIPRO [Suspect]
     Active Substance: CIPROFLOXACIN HYDROCHLORIDE
     Indication: INJECTION SITE ABSCESS
     Route: 048
     Dates: start: 20120804, end: 20141204
  3. LEVAQUIN [Suspect]
     Active Substance: LEVOFLOXACIN
     Indication: INFECTION PROPHYLAXIS

REACTIONS (5)
  - Exercise tolerance decreased [None]
  - Fatigue [None]
  - Neuropathy peripheral [None]
  - Tendonitis [None]
  - Activities of daily living impaired [None]

NARRATIVE: CASE EVENT DATE: 20161105
